FAERS Safety Report 5692156-8 (Version None)
Quarter: 2008Q2

REPORT INFORMATION
  Report Type: 
  Country: None (occurrence: None)
  Receive Date: 20080402
  Receipt Date: 20080327
  Transmission Date: 20081010
  Serious: Yes (Other)
  Sender: FDA-Public Use
  Company Number: A0718445A

PATIENT
  Age: 74 Year
  Sex: Female
  Weight: 64 kg

DRUGS (5)
  1. AVANDIA [Suspect]
     Dosage: 4MG PER DAY
     Route: 048
     Dates: start: 20070701, end: 20080124
  2. PRESSAT [Concomitant]
     Dates: start: 20060201, end: 20080224
  3. ATENOLOLO + CLORTALIDONE [Concomitant]
     Dates: start: 20060201, end: 20080224
  4. METFORMIN HCL [Concomitant]
     Dates: start: 20030101
  5. CIPROFIBRATE [Concomitant]

REACTIONS (2)
  - GASTROINTESTINAL CARCINOMA [None]
  - OEDEMA PERIPHERAL [None]
